FAERS Safety Report 11052566 (Version 2)
Quarter: 2015Q2

REPORT INFORMATION
  Report Type: Spontaneous
  Country: US (occurrence: US)
  Receive Date: 20150421
  Receipt Date: 20150525
  Transmission Date: 20150821
  Serious: No
  Sender: FDA-Public Use
  Company Number: US-JNJFOC-20140202805

PATIENT
  Age: 16 Year
  Sex: Male

DRUGS (4)
  1. RISPERDAL [Suspect]
     Active Substance: RISPERIDONE
     Indication: AGGRESSION
     Route: 048
     Dates: start: 201312
  2. RISPERDAL [Suspect]
     Active Substance: RISPERIDONE
     Indication: IRRITABILITY
     Dosage: 0.5 MG TO 1MG, EVERY MORNING AND AT BET TIME
     Route: 048
     Dates: start: 201012
  3. RISPERDAL [Suspect]
     Active Substance: RISPERIDONE
     Indication: IRRITABILITY
     Route: 048
     Dates: start: 201312
  4. RISPERDAL [Suspect]
     Active Substance: RISPERIDONE
     Indication: AGGRESSION
     Dosage: 0.5 MG TO 1MG, EVERY MORNING AND AT BET TIME
     Route: 048
     Dates: start: 201012

REACTIONS (3)
  - Breast enlargement [Unknown]
  - Aggression [Unknown]
  - Irritability [Unknown]

NARRATIVE: CASE EVENT DATE: 201312
